FAERS Safety Report 14676151 (Version 1)
Quarter: 2018Q1

REPORT INFORMATION
  Report Type: Spontaneous
  Country: FR (occurrence: FR)
  Receive Date: 20180323
  Receipt Date: 20180323
  Transmission Date: 20180509
  Serious: Yes (Hospitalization)
  Sender: FDA-Public Use
  Company Number: FR-ELI_LILLY_AND_COMPANY-FR201802005301

PATIENT
  Age: 51 Year
  Sex: Male
  Weight: 71 kg

DRUGS (6)
  1. DUOPLAVIN [Concomitant]
     Active Substance: ASPIRIN\CLOPIDOGREL
     Dosage: 75 MG, UNKNOWN
     Route: 048
     Dates: start: 20131031
  2. OMEPRAZOLE. [Concomitant]
     Active Substance: OMEPRAZOLE
     Dosage: 20 MG, UNKNOWN
     Route: 048
     Dates: start: 20131031
  3. MONOTILDIEM [Concomitant]
     Active Substance: DILTIAZEM
     Dosage: 1 DF, UNKNOWN
     Route: 048
     Dates: start: 20131031
  4. TALTZ [Suspect]
     Active Substance: IXEKIZUMAB
     Indication: PSORIASIS
     Dosage: UNK UNK, UNKNOWN
     Route: 058
     Dates: start: 20170315, end: 201801
  5. LIPTRUZET [Concomitant]
     Active Substance: ATORVASTATIN CALCIUM\EZETIMIBE
     Dosage: 10 MG, UNKNOWN
     Route: 048
     Dates: start: 20131031
  6. LIPTRUZET [Concomitant]
     Active Substance: ATORVASTATIN CALCIUM\EZETIMIBE
     Dosage: 20 MG, UNKNOWN
     Route: 048
     Dates: start: 20131031

REACTIONS (1)
  - Arterial stenosis [Recovered/Resolved]

NARRATIVE: CASE EVENT DATE: 20180205
